FAERS Safety Report 8963917 (Version 1)
Quarter: 2012Q4

REPORT INFORMATION
  Report Type: 
  Country: FR (occurrence: FR)
  Receive Date: 20121214
  Receipt Date: 20121214
  Transmission Date: 20130627
  Serious: Yes (Life-Threatening, Hospitalization, Other)
  Sender: FDA-Public Use
  Company Number: FR-AMGEN-FRASP2012079667

PATIENT
  Age: 69 Year
  Sex: Female

DRUGS (8)
  1. ENBREL [Suspect]
     Indication: RHEUMATOID ARTHRITIS
     Dosage: 1 DF
     Route: 058
     Dates: start: 2008, end: 201109
  2. ENBREL [Suspect]
     Dosage: 1 DF
     Route: 058
     Dates: start: 201202, end: 201208
  3. SEROPRAM                           /00582602/ [Concomitant]
     Dosage: 20 mg, 1x/day
  4. COUMADINE [Concomitant]
     Dosage: 7 mg, 1x/day
  5. CIFLOX                             /00697201/ [Concomitant]
     Dosage: 250 mg, 1x/day
  6. RIFADINE                           /00146901/ [Concomitant]
     Dosage: 300 mg, 3x/day
  7. DOLIPRANE [Concomitant]
     Dosage: 1 g, 4x/day
  8. CONTRAMAL [Concomitant]
     Dosage: 50 mg, as needed

REACTIONS (9)
  - B-cell lymphoma [Not Recovered/Not Resolved]
  - Muscle abscess [Recovering/Resolving]
  - Hydronephrosis [Unknown]
  - Embolism [Unknown]
  - Mobility decreased [Unknown]
  - Pyelonephritis [Unknown]
  - Haematoma infection [Recovering/Resolving]
  - Pelvic abscess [Unknown]
  - Staphylococcal abscess [Unknown]
